FAERS Safety Report 12706388 (Version 2)
Quarter: 2016Q4

REPORT INFORMATION
  Report Type: Spontaneous
  Country: US (occurrence: US)
  Receive Date: 20160901
  Receipt Date: 20161021
  Transmission Date: 20170207
  Serious: Yes (Other)
  Sender: FDA-Public Use
  Company Number: PHEH2016US022012

PATIENT
  Age: 65 Year
  Sex: Female
  Weight: 72.2 kg

DRUGS (2)
  1. SANDOSTATIN LAR DEPOT [Suspect]
     Active Substance: OCTREOTIDE ACETATE
     Indication: NEUROENDOCRINE TUMOUR
  2. SANDOSTATIN LAR DEPOT [Suspect]
     Active Substance: OCTREOTIDE ACETATE
     Indication: CARCINOID SYNDROME
     Dosage: 30 MG, UNK
     Route: 030
     Dates: start: 20160815, end: 20160816

REACTIONS (3)
  - Hyperhidrosis [Recovered/Resolved]
  - Chest pain [Recovered/Resolved]
  - Palpitations [Unknown]

NARRATIVE: CASE EVENT DATE: 20160815
